FAERS Safety Report 9160295 (Version 2)
Quarter: 2013Q1

REPORT INFORMATION
  Report Type: Spontaneous
  Country: GB (occurrence: None)
  Receive Date: 20130219
  Receipt Date: 20130222
  Transmission Date: 20140127
  Serious: Yes (Hospitalization, Other)
  Sender: FDA-Public Use
  Company Number: AUR-APL-2013-01398

PATIENT
  Age: 68 Year
  Sex: Female
  Weight: 97 kg

DRUGS (11)
  1. METFORMIN (METFORMIN) [Suspect]
     Indication: PRODUCT USED FOR UNKNOWN INDICATION
     Route: 051
     Dates: start: 20030408, end: 20120725
  2. AMITRIPTYLINE (AMITRIPTYLINE) [Concomitant]
  3. AMLODIPINE (AMLODIPINE) [Concomitant]
  4. ATENOLOL (ATENOLOL) [Concomitant]
  5. CETIRIZINE (CETIRIZINE) [Concomitant]
  6. SULPHATE (FERROUS SULFATE) [Concomitant]
  7. FUROSEMIDE (FUROSEMIDE) [Concomitant]
  8. HUMULIN (INSULIN HUMAN) [Concomitant]
  9. HYDROXYZINE (HYDROXYZINE) [Concomitant]
  10. PERINDOPRIL (PERINDOPRIL) [Concomitant]
  11. SIMVASTATIN (SIMVASTATIN) [Concomitant]

REACTIONS (4)
  - Malaise [None]
  - Dysarthria [None]
  - Hypotension [None]
  - Renal failure acute [None]
